FAERS Safety Report 18017645 (Version 2)
Quarter: 2020Q3

REPORT INFORMATION
  Report Type: Spontaneous
  Country: IT (occurrence: IT)
  Receive Date: 20200713
  Receipt Date: 20200903
  Transmission Date: 20201103
  Serious: Yes (Other)
  Sender: FDA-Public Use
  Company Number: IT-BAYER-2020-052267

PATIENT
  Age: 29 Year
  Sex: Female

DRUGS (1)
  1. JAYDESS [Suspect]
     Active Substance: LEVONORGESTREL
     Indication: CONTRACEPTION
     Dosage: 14 ?G PER DAY, CONTINUOUSLY
     Route: 015
     Dates: start: 201901, end: 20200627

REACTIONS (10)
  - Pregnancy with contraceptive device [Recovered/Resolved]
  - Haemorrhage in pregnancy [None]
  - Premature delivery [None]
  - Drug ineffective [None]
  - Escherichia test positive [None]
  - Placenta praevia [None]
  - Gardnerella test positive [None]
  - Uterine contractions during pregnancy [None]
  - Device expulsion [Recovered/Resolved]
  - Mycoplasma test positive [None]

NARRATIVE: CASE EVENT DATE: 202002
